FAERS Safety Report 10071677 (Version 1)
Quarter: 2014Q2

REPORT INFORMATION
  Report Type: Spontaneous
  Country: US (occurrence: US)
  Receive Date: 20140411
  Receipt Date: 20140411
  Transmission Date: 20141212
  Serious: Yes (Other)
  Sender: FDA-Public Use
  Company Number: US-AMGEN-USASP2014024608

PATIENT
  Age: 82 Year
  Sex: Female

DRUGS (3)
  1. PROLIA [Suspect]
     Indication: OSTEOPOROSIS POSTMENOPAUSAL
     Dosage: UNK
     Route: 065
  2. ATENOLOL [Concomitant]
  3. NORVASC [Concomitant]
     Indication: HYPERTENSION

REACTIONS (10)
  - Eyelid oedema [Unknown]
  - Cataract [Unknown]
  - Hypertension [Unknown]
  - Asthenopia [Unknown]
  - Pain [Unknown]
  - Headache [Unknown]
  - Pain in jaw [Recovering/Resolving]
  - Local swelling [Unknown]
  - Ear pain [Unknown]
  - Pain in extremity [Unknown]
